FAERS Safety Report 5033694-0 (Version None)
Quarter: 2006Q2

REPORT INFORMATION
  Report Type: 
  Country: None (occurrence: None)
  Receive Date: 20060623
  Receipt Date: 20060615
  Transmission Date: 20061013
  Serious: Yes (Other)
  Sender: FDA-Public Use
  Company Number: GB-GLAXOSMITHKLINE-B0428595A

PATIENT
  Age: 52 Year
  Sex: Male

DRUGS (6)
  1. LAMIVUDINE [Suspect]
     Indication: HIV INFECTION
     Route: 065
  2. TENOFOVIR [Suspect]
     Indication: HIV INFECTION
     Route: 065
  3. EFAVIRENZ [Suspect]
     Indication: HIV INFECTION
     Route: 065
  4. ISONIAZID [Concomitant]
  5. RIFAMPICIN [Concomitant]
  6. PYRAZINAMIDE [Concomitant]

REACTIONS (6)
  - CONFUSIONAL STATE [None]
  - GRANULOMATOUS LIVER DISEASE [None]
  - HYPERCALCAEMIA [None]
  - IMMUNE RECONSTITUTION SYNDROME [None]
  - JAUNDICE [None]
  - PYREXIA [None]
